FAERS Safety Report 6184093-X (Version None)
Quarter: 2009Q2

REPORT INFORMATION
  Report Type: 
  Country: None (occurrence: None)
  Receive Date: 20090508
  Receipt Date: 20090428
  Transmission Date: 20091009
  Serious: Yes (Hospitalization)
  Sender: FDA-Public Use
  Company Number: AU-NOVOPROD-286657

PATIENT
  Age: 60 Year
  Sex: Female

DRUGS (2)
  1. NOVORAPID PENFILL [Suspect]
     Indication: TYPE 1 DIABETES MELLITUS
     Dosage: 60-70  U, 3 TIMES A DAY
  2. PROTAPHANE PENFILL [Suspect]
     Indication: TYPE 1 DIABETES MELLITUS
     Dosage: 60 U AT NIGHT, QD

REACTIONS (1)
  - CEREBROVASCULAR ACCIDENT [None]
